FAERS Safety Report 23425601 (Version 1)
Quarter: 2024Q1

REPORT INFORMATION
  Report Type: Spontaneous
  Country: US (occurrence: US)
  Receive Date: 20240122
  Receipt Date: 20240122
  Transmission Date: 20240410
  Serious: Yes (Hospitalization, Other)
  Sender: FDA-Public Use
  Company Number: US-IPCA LABORATORIES LIMITED-IPC-2024-US-000122

PATIENT

DRUGS (4)
  1. WARFARIN [Suspect]
     Active Substance: WARFARIN
     Indication: Heart disease congenital
     Dosage: 2 MILLIGRAM, QD AT NIGHT
     Route: 065
  2. WARFARIN [Suspect]
     Active Substance: WARFARIN
     Indication: Prosthetic cardiac valve regurgitation
     Dosage: 4 MILLIGRAM, QD AT NIGHT
     Route: 065
  3. HEPARIN [Suspect]
     Active Substance: HEPARIN SODIUM
     Indication: Heart disease congenital
     Dosage: UNK
     Route: 065
  4. HEPARIN [Suspect]
     Active Substance: HEPARIN SODIUM
     Indication: Prosthetic cardiac valve regurgitation

REACTIONS (9)
  - Subchorionic haematoma [Unknown]
  - Premature separation of placenta [Unknown]
  - Vaginal haemorrhage [Unknown]
  - Anticoagulation drug level above therapeutic [Unknown]
  - Subchorionic haemorrhage [Unknown]
  - Cervicitis [Unknown]
  - Cervical dilatation [Unknown]
  - Premature delivery [Unknown]
  - Maternal exposure during pregnancy [Unknown]
